FAERS Safety Report 7439836-1 (Version None)
Quarter: 2011Q2

REPORT INFORMATION
  Report Type: 
  Country: None (occurrence: None)
  Receive Date: 20110427
  Receipt Date: 20110419
  Transmission Date: 20111010
  Serious: Yes (Other)
  Sender: FDA-Public Use
  Company Number: US-ROXANE LABORATORIES, INC.-2011-RO-00542RO

PATIENT
  Age: 54 Year
  Sex: Female

DRUGS (6)
  1. ETOPOSIDE [Suspect]
     Indication: NON-HODGKIN'S LYMPHOMA RECURRENT
  2. METHOTREXATE [Suspect]
     Indication: NON-HODGKIN'S LYMPHOMA RECURRENT
     Route: 037
  3. RITUXIMAB [Suspect]
     Indication: NON-HODGKIN'S LYMPHOMA RECURRENT
  4. CISPLATIN [Suspect]
     Indication: NON-HODGKIN'S LYMPHOMA RECURRENT
  5. CYTARABINE [Suspect]
     Indication: NON-HODGKIN'S LYMPHOMA RECURRENT
  6. METHYLPREDNISOLONE ACETATE [Suspect]
     Indication: NON-HODGKIN'S LYMPHOMA RECURRENT

REACTIONS (3)
  - PHOTOPSIA [None]
  - BRAIN OEDEMA [None]
  - GRAND MAL CONVULSION [None]
